FAERS Safety Report 10683455 (Version 1)
Quarter: 2014Q4

REPORT INFORMATION
  Report Type: Spontaneous
  Country: US (occurrence: US)
  Receive Date: 20141230
  Receipt Date: 20141230
  Transmission Date: 20150529
  Serious: No
  Sender: FDA-Public Use
  Company Number: US-TARO-2014TAR00347

PATIENT
  Age: 81 Year
  Sex: Male
  Weight: 74.83 kg

DRUGS (2)
  1. FLUOROURACIL TOPICAL SOLUTION USP 2% [Suspect]
     Active Substance: FLUOROURACIL
     Indication: SUNBURN
  2. FLUOROURACIL TOPICAL SOLUTION USP 2% [Suspect]
     Active Substance: FLUOROURACIL
     Indication: PRECANCEROUS SKIN LESION
     Dosage: UNK, 2X/DAY
     Route: 061
     Dates: start: 20140903

REACTIONS (1)
  - Drug ineffective [Not Recovered/Not Resolved]

NARRATIVE: CASE EVENT DATE: 201409
